FAERS Safety Report 5797189-9 (Version None)
Quarter: 2008Q2

REPORT INFORMATION
  Report Type: 
  Country: None (occurrence: None)
  Receive Date: 20080627
  Receipt Date: 20080619
  Transmission Date: 20081010
  Serious: Yes (Hospitalization)
  Sender: FDA-Public Use
  Company Number: 2008SP010385

PATIENT
  Age: 77 Year
  Sex: Male
  Weight: 69 kg

DRUGS (6)
  1. TEMODAL [Suspect]
     Indication: OESOPHAGEAL CARCINOMA
     Dosage: 270 MG; RD; 270 MG; RD
     Dates: start: 20080510, end: 20080516
  2. TEMODAL [Suspect]
     Indication: OESOPHAGEAL CARCINOMA
     Dosage: 270 MG; RD; 270 MG; RD
     Dates: start: 20080524, end: 20080529
  3. ACETYLSALISYLRYA [Concomitant]
  4. BISOPROLOL FUMARATE [Concomitant]
  5. ATORVASTATIN CALCIUM [Concomitant]
  6. LANSOPRAZOL [Concomitant]

REACTIONS (6)
  - ACTIVITIES OF DAILY LIVING IMPAIRED [None]
  - FATIGUE [None]
  - HAEMATEMESIS [None]
  - HAEMOGLOBIN DECREASED [None]
  - UPPER GASTROINTESTINAL HAEMORRHAGE [None]
  - VERTIGO [None]
